FAERS Safety Report 11518348 (Version 1)
Quarter: 2015Q3

REPORT INFORMATION
  Report Type: Spontaneous
  Country: US (occurrence: US)
  Receive Date: 20150917
  Receipt Date: 20150917
  Transmission Date: 20151125
  Serious: Yes (Other)
  Sender: FDA-Public Use
  Company Number: US-GILEAD-2015-0171935

PATIENT
  Sex: Male

DRUGS (1)
  1. HARVONI [Suspect]
     Active Substance: LEDIPASVIR\SOFOSBUVIR
     Indication: PRODUCT USED FOR UNKNOWN INDICATION
     Dosage: UNK
     Route: 065
     Dates: start: 201508, end: 201509

REACTIONS (5)
  - Hypersensitivity [Unknown]
  - Swollen tongue [Unknown]
  - Hypoaesthesia oral [Unknown]
  - Dysgeusia [Unknown]
  - Mouth swelling [Unknown]

NARRATIVE: CASE EVENT DATE: 201509
